FAERS Safety Report 8256631-4 (Version None)
Quarter: 2012Q2

REPORT INFORMATION
  Report Type: 
  Country: None (occurrence: None)
  Receive Date: 20120403
  Receipt Date: 20120330
  Transmission Date: 20120825
  Serious: Yes (Hospitalization, Other)
  Sender: FDA-Public Use
  Company Number: US-MERCK-1109USA03019

PATIENT
  Age: 56 Year
  Sex: Female
  Weight: 77 kg

DRUGS (12)
  1. FOSAMAX [Suspect]
     Route: 048
     Dates: start: 20040101, end: 20060501
  2. FOSAMAX [Suspect]
     Route: 048
     Dates: start: 20070301, end: 20080101
  3. PROVENTIL [Concomitant]
     Route: 055
  4. BONIVA [Suspect]
     Route: 048
     Dates: start: 20060601, end: 20070301
  5. HYDROCHLOROTHIAZIDE [Concomitant]
     Route: 048
  6. FOSAMAX [Suspect]
     Indication: OSTEOPOROSIS
     Route: 048
     Dates: start: 20010901, end: 20011001
  7. FOSAMAX [Suspect]
     Indication: OSTEOPENIA
     Route: 048
     Dates: start: 20010901, end: 20011001
  8. ALENDRONATE SODIUM [Suspect]
     Route: 048
     Dates: start: 20081201, end: 20090901
  9. ADVAIR DISKUS 100/50 [Concomitant]
     Route: 055
  10. FOSAMAX [Suspect]
     Route: 048
     Dates: start: 20070301, end: 20080101
  11. FOSAMAX [Suspect]
     Route: 048
     Dates: start: 20040101, end: 20060501
  12. LISINOPRIL [Concomitant]
     Route: 048

REACTIONS (18)
  - METABOLIC ACIDOSIS [None]
  - BLOOD THYROID STIMULATING HORMONE DECREASED [None]
  - RENAL FAILURE CHRONIC [None]
  - POSTOPERATIVE RENAL FAILURE [None]
  - VITAMIN D DEFICIENCY [None]
  - TOOTH DISORDER [None]
  - ASTHMA [None]
  - SINUSITIS [None]
  - ONYCHOMYCOSIS [None]
  - FALL [None]
  - STRESS FRACTURE [None]
  - FEMUR FRACTURE [None]
  - ANAEMIA [None]
  - OEDEMA PERIPHERAL [None]
  - LOW TURNOVER OSTEOPATHY [None]
  - TREATMENT NONCOMPLIANCE [None]
  - CONTUSION [None]
  - CHRONIC OBSTRUCTIVE PULMONARY DISEASE [None]
